FAERS Safety Report 9178717 (Version 1)
Quarter: 2012Q4

REPORT INFORMATION
  Report Type: 
  Country: US (occurrence: US)
  Receive Date: 20121029
  Receipt Date: 20121029
  Transmission Date: 20130627
  Serious: No
  Sender: FDA-Public Use
  Company Number: US-AMGEN-USASP2012053166

PATIENT
  Age: 60 Year
  Sex: Male
  Weight: 84.35 kg

DRUGS (8)
  1. ENBREL [Suspect]
     Indication: PRODUCT USED FOR UNKNOWN INDICATION
     Dosage: 50 mg, qwk
     Route: 058
  2. COUMADIN                           /00014802/ [Concomitant]
     Dosage: 5 mg, UNK
     Route: 048
  3. CARVEDILOL [Concomitant]
     Dosage: 6.25 mg, UNK
     Route: 048
  4. LISINOPRIL [Concomitant]
     Dosage: 5 mg, UNK
     Route: 048
  5. PRAVASTATIN [Concomitant]
     Dosage: 20 mg, UNK
     Route: 048
  6. DIGOXIN [Concomitant]
     Dosage: 0.25 mg, UNK
     Route: 048
  7. MULTIPLE VITAMINS [Concomitant]
     Dosage: UNK
     Route: 048
  8. VITAMIN B [Concomitant]
     Dosage: UNK
     Route: 048

REACTIONS (1)
  - Joint stiffness [Unknown]
